FAERS Safety Report 5030549-2 (Version None)
Quarter: 2006Q2

REPORT INFORMATION
  Report Type: 
  Country: None (occurrence: None)
  Receive Date: 20060615
  Receipt Date: 20060612
  Transmission Date: 20061013
  Serious: Yes (Other)
  Sender: FDA-Public Use
  Company Number: 007711

PATIENT
  Sex: Female

DRUGS (5)
  1. MEDROXYPROGESTERONE ACETATE [Suspect]
     Dosage: ORAL
     Route: 048
     Dates: start: 19950701, end: 20000613
  2. ESTROPIPATE [Suspect]
     Dosage: ORAL
     Route: 048
     Dates: start: 19950701, end: 20000613
  3. OGEN [Suspect]
     Dosage: ORAL
     Route: 048
     Dates: start: 19950701, end: 20000313
  4. PROVERA [Suspect]
     Dosage: ORAL
     Route: 048
     Dates: start: 19950701, end: 20000313
  5. PROVERA [Suspect]
     Dosage: ORAL
     Route: 048
     Dates: start: 19950701, end: 20000613

REACTIONS (1)
  - BREAST CANCER FEMALE [None]
